FAERS Safety Report 6742016-6 (Version None)
Quarter: 2010Q2

REPORT INFORMATION
  Report Type: 
  Country: None (occurrence: None)
  Receive Date: 20100524
  Receipt Date: 20100507
  Transmission Date: 20101027
  Serious: Yes (Other)
  Sender: FDA-Public Use
  Company Number: FKO201000184

PATIENT
  Age: 60 Year
  Sex: Female

DRUGS (1)
  1. OXITAN (OXALIPLATIN) (OXALIPLATIN) , 9JX107 [Suspect]
     Dosage: (50 MG), INTRAVENOUS (NOT OTHERWISE SPECIFIED), (200 MG)   INTRAVENOUS (NOT OTHERWISE SPECIFIED)
     Route: 042

REACTIONS (3)
  - BURNING SENSATION [None]
  - PRURITUS GENERALISED [None]
  - TONGUE OEDEMA [None]
